FAERS Safety Report 8820052 (Version 3)
Quarter: 2012Q4

REPORT INFORMATION
  Report Type: 
  Country: US (occurrence: US)
  Receive Date: 20121001
  Receipt Date: 20121019
  Transmission Date: 20130627
  Serious: Yes (Death, Other)
  Sender: FDA-Public Use
  Company Number: US-BAXTER-2012BAX017305

PATIENT
  Sex: Male

DRUGS (2)
  1. DIANEAL LOW CALCIUM [Suspect]
     Indication: PERITONEAL DIALYSIS
     Route: 033
     Dates: end: 20120917
  2. EXTRANEAL [Suspect]
     Indication: PERITONEAL DIALYSIS
     Route: 033
     Dates: end: 20120917

REACTIONS (9)
  - Muscle atrophy [Fatal]
  - Hypertension [Fatal]
  - Protein total abnormal [Unknown]
  - Oesophageal disorder [Unknown]
  - Functional gastrointestinal disorder [Unknown]
  - General physical health deterioration [Unknown]
  - Corneal reflex decreased [Unknown]
  - Vomiting [Unknown]
  - Nausea [Unknown]
